FAERS Safety Report 5284451-1 (Version None)
Quarter: 2007Q2

REPORT INFORMATION
  Report Type: 
  Country: None (occurrence: None)
  Receive Date: 20070403
  Receipt Date: 20070330
  Transmission Date: 20071010
  Serious: Yes (Hospitalization, Other)
  Sender: FDA-Public Use
  Company Number: 2006UW11693

PATIENT
  Age: 33 Year
  Sex: Female
  Weight: 121.4 kg

DRUGS (8)
  1. SEROQUEL [Suspect]
     Indication: ANXIETY
     Route: 048
     Dates: start: 20000101, end: 20060101
  2. SEROQUEL [Suspect]
     Indication: DEPRESSION
     Route: 048
     Dates: start: 20000101, end: 20060101
  3. SEROQUEL [Suspect]
     Indication: SCHIZOPHRENIA
     Route: 048
     Dates: start: 20000101, end: 20060101
  4. RISPERDAL [Suspect]
     Dates: start: 20020101, end: 20060101
  5. ABILIFY [Concomitant]
  6. CLOZARIL [Concomitant]
     Dates: start: 20040101, end: 20060101
  7. GEODON [Concomitant]
  8. ZYPREXA [Concomitant]
     Dates: start: 20040101, end: 20050101

REACTIONS (5)
  - DIABETES MELLITUS [None]
  - DIABETIC COMA [None]
  - DIABETIC KETOACIDOSIS [None]
  - NEUROLEPTIC MALIGNANT SYNDROME [None]
  - NEUROPATHY [None]
